FAERS Safety Report 7445460-7 (Version None)
Quarter: 2011Q2

REPORT INFORMATION
  Report Type: 
  Country: None (occurrence: None)
  Receive Date: 20110429
  Receipt Date: 20110427
  Transmission Date: 20111010
  Serious: Yes (Other)
  Sender: FDA-Public Use
  Company Number: US-PFIZER INC-2011067388

PATIENT
  Sex: Female
  Weight: 47.619 kg

DRUGS (2)
  1. NICOTROL [Suspect]
     Indication: SMOKING CESSATION THERAPY
     Dosage: UNK
     Route: 055
     Dates: start: 20110301
  2. SYNTHROID [Concomitant]
     Indication: HYPOTHYROIDISM
     Dosage: UNK
     Dates: start: 19990101

REACTIONS (5)
  - DRUG INEFFECTIVE [None]
  - CHOKING [None]
  - THROAT IRRITATION [None]
  - DYSPHONIA [None]
  - RETCHING [None]
